FAERS Safety Report 7414076-0 (Version None)
Quarter: 2011Q2

REPORT INFORMATION
  Report Type: 
  Country: None (occurrence: None)
  Receive Date: 20110414
  Receipt Date: 20110407
  Transmission Date: 20111010
  Serious: No
  Sender: FDA-Public Use
  Company Number: US-PFIZER INC-2011077868

PATIENT
  Sex: Female

DRUGS (3)
  1. LYRICA [Suspect]
     Indication: PALPITATIONS
  2. LYRICA [Suspect]
     Indication: ANXIETY
     Dosage: 75 MG, 2X/DAY
     Dates: start: 20110401
  3. LYRICA [Suspect]
     Indication: HEADACHE

REACTIONS (4)
  - DIZZINESS [None]
  - PAIN [None]
  - HEADACHE [None]
  - DEPRESSION [None]
